FAERS Safety Report 13877068 (Version 1)
Quarter: 2017Q3

REPORT INFORMATION
  Report Type: Report from Study
  Country: US (occurrence: US)
  Receive Date: 20170817
  Receipt Date: 20170817
  Transmission Date: 20171127
  Serious: Yes (Hospitalization)
  Sender: FDA-Public Use
  Company Number: US-JNJFOC-20170813445

PATIENT
  Age: 78 Year
  Sex: Female

DRUGS (9)
  1. ANASTROZOLE. [Concomitant]
     Active Substance: ANASTROZOLE
  2. RESTORIL [Concomitant]
     Active Substance: TEMAZEPAM
  3. COZAAR [Concomitant]
     Active Substance: LOSARTAN POTASSIUM
  4. LOVASTATIN. [Concomitant]
     Active Substance: LOVASTATIN
  5. ALLOPURINOL. [Concomitant]
     Active Substance: ALLOPURINOL
  6. ZYRTEC [Concomitant]
     Active Substance: CETIRIZINE HYDROCHLORIDE
  7. IMBRUVICA [Suspect]
     Active Substance: IBRUTINIB
     Indication: CHRONIC LYMPHOCYTIC LEUKAEMIA
     Route: 048
     Dates: start: 20160309
  8. AMLODIPINE [Concomitant]
     Active Substance: AMLODIPINE BESYLATE
  9. OMEPRAZOLE. [Concomitant]
     Active Substance: OMEPRAZOLE

REACTIONS (4)
  - Arthropathy [Unknown]
  - Inflammation [Unknown]
  - Peripheral swelling [Unknown]
  - Dementia [Unknown]

NARRATIVE: CASE EVENT DATE: 201704
